FAERS Safety Report 4850171-8 (Version None)
Quarter: 2005Q4

REPORT INFORMATION
  Report Type: 
  Country: None (occurrence: None)
  Receive Date: 20051207
  Receipt Date: 20051207
  Transmission Date: 20060501
  Serious: No
  Sender: FDA-Public Use
  Company Number: None

PATIENT

DRUGS (3)
  1. FLOLAN [Suspect]
     Dosage: INJECTABLE
  2. MEDICATION CASSETTE RESERVOIR WITH NON-VENTED STOPPER [Suspect]
  3. 0.2 MICRON FILTER [Suspect]

REACTIONS (2)
  - DRUG DISPENSING ERROR [None]
  - MEDICAL DEVICE COMPLICATION [None]
